FAERS Safety Report 24450139 (Version 1)
Quarter: 2024Q4

REPORT INFORMATION
  Report Type: Spontaneous
  Country: CH (occurrence: CH)
  Receive Date: 20241017
  Receipt Date: 20241017
  Transmission Date: 20250115
  Serious: Yes (Hospitalization)
  Sender: MYLAN
  Company Number: None

PATIENT
  Age: 77 Year
  Sex: Female

DRUGS (5)
  1. ATORVASTATIN CALCIUM [Suspect]
     Active Substance: ATORVASTATIN CALCIUM
     Indication: Arteriosclerosis
     Dosage: 80 MILLIGRAM, QD (40 MG ORALLY 2 TIMES DAILY)
     Route: 048
     Dates: start: 202305, end: 20240723
  2. ASPIRIN [Concomitant]
     Active Substance: ASPIRIN
     Dosage: 100 MILLIGRAM, QD (1 TABLET DAILY)
     Route: 048
     Dates: start: 202305
  3. RAMIPRIL [Concomitant]
     Active Substance: RAMIPRIL
     Dosage: 2.5 MILLIGRAM, QD (ONCE DAILY)
     Route: 048
  4. ELTROXIN LF [Concomitant]
     Dosage: 0.1 MILLIGRAM, QD (ONCE DAILY)
     Route: 048
  5. Sertralin viatris [Concomitant]
     Dosage: 50 MILLIGRAM, QD (ONCE DAILY)
     Route: 048

REACTIONS (2)
  - Myopathy [Recovering/Resolving]
  - Liver disorder [Recovering/Resolving]

NARRATIVE: CASE EVENT DATE: 20240722
